FAERS Safety Report 13399867 (Version 1)
Quarter: 2017Q2

REPORT INFORMATION
  Report Type: Spontaneous
  Country: US (occurrence: US)
  Receive Date: 20170404
  Receipt Date: 20170404
  Transmission Date: 20170830
  Serious: Yes (Other)
  Sender: FDA-Public Use
  Company Number: None

PATIENT
  Age: 65 Year
  Sex: Male
  Weight: 90.35 kg

DRUGS (12)
  1. OLANZAPINE. [Concomitant]
     Active Substance: OLANZAPINE
  2. PANTOPRAZOLE [Concomitant]
     Active Substance: PANTOPRAZOLE
  3. DILTIAZEM. [Concomitant]
     Active Substance: DILTIAZEM
  4. COMBIVENT [Concomitant]
     Active Substance: ALBUTEROL SULFATE\IPRATROPIUM BROMIDE
  5. CARAFATE [Concomitant]
     Active Substance: SUCRALFATE
  6. TOPIRAMATE. [Concomitant]
     Active Substance: TOPIRAMATE
  7. RIVAROXABAN [Concomitant]
     Active Substance: RIVAROXABAN
  8. CLONAZEPAM. [Concomitant]
     Active Substance: CLONAZEPAM
  9. ADVAIR HFA [Concomitant]
     Active Substance: FLUTICASONE PROPIONATE\SALMETEROL XINAFOATE
  10. SYMMETREL [Suspect]
     Active Substance: AMANTADINE HYDROCHLORIDE
  11. CHOLECALCIFEROL [Concomitant]
     Active Substance: CHOLECALCIFEROL
  12. GUAIFENESIN. [Concomitant]
     Active Substance: GUAIFENESIN

REACTIONS (2)
  - Polydipsia [None]
  - Oedema peripheral [None]

NARRATIVE: CASE EVENT DATE: 20170324
